FAERS Safety Report 7556214-5 (Version None)
Quarter: 2011Q2

REPORT INFORMATION
  Report Type: 
  Country: None (occurrence: None)
  Receive Date: 20110620
  Receipt Date: 20110609
  Transmission Date: 20111010
  Serious: Yes (Life-Threatening, Hospitalization)
  Sender: FDA-Public Use
  Company Number: JP-AMGEN-JPNSP2011025371

PATIENT
  Age: 73 Year
  Sex: Female
  Weight: 49.8 kg

DRUGS (16)
  1. ENBREL [Suspect]
     Dosage: 50 MG, WEEKLY
     Dates: start: 20110117, end: 20110425
  2. REMICADE [Suspect]
     Dosage: UNK
  3. PREDNISOLONE [Concomitant]
     Indication: RHEUMATOID ARTHRITIS
     Dosage: UNK
     Route: 048
     Dates: start: 20100419, end: 20100513
  4. PROGRAF [Concomitant]
     Indication: RHEUMATOID ARTHRITIS
     Dosage: UNK
     Route: 048
     Dates: start: 20100628, end: 20100912
  5. PREDNISOLONE [Concomitant]
     Dosage: UNK
     Route: 048
     Dates: start: 20100913, end: 20101024
  6. PROGRAF [Concomitant]
     Dosage: UNK
     Route: 048
     Dates: start: 20100913, end: 20101024
  7. PREDNISOLONE [Concomitant]
     Dosage: UNK
     Route: 048
     Dates: start: 20100628, end: 20100808
  8. BREDININ [Concomitant]
     Indication: RHEUMATOID ARTHRITIS
     Dosage: UNK
     Route: 048
     Dates: start: 20110126, end: 20110516
  9. ENBREL [Suspect]
     Indication: RHEUMATOID ARTHRITIS
     Dosage: UNK
     Route: 058
     Dates: start: 20071001
  10. PREDNISOLONE [Concomitant]
     Dosage: UNK
     Route: 048
     Dates: start: 20101206, end: 20110222
  11. SULFASALAZINE [Concomitant]
     Indication: RHEUMATOID ARTHRITIS
     Dosage: UNK
     Route: 048
     Dates: start: 20101206, end: 20110116
  12. SULFASALAZINE [Concomitant]
     Dosage: UNK
     Route: 048
     Dates: start: 20110117, end: 20110125
  13. ENBREL [Suspect]
     Dosage: 25 MG, 2X/WEEK
     Dates: start: 20100419, end: 20110116
  14. PREDNISOLONE [Concomitant]
     Dosage: UNK
     Route: 048
     Dates: start: 20100514, end: 20100627
  15. PREDNISOLONE [Concomitant]
     Dosage: UNK
     Route: 048
     Dates: start: 20101025, end: 20101205
  16. PREDNISOLONE [Concomitant]
     Dosage: UNK
     Route: 048
     Dates: start: 20110223

REACTIONS (1)
  - PANCREATIC CARCINOMA [None]
